FAERS Safety Report 9437819 (Version 1)
Quarter: 2013Q3

REPORT INFORMATION
  Report Type: Spontaneous
  Country: US (occurrence: US)
  Receive Date: 20130802
  Receipt Date: 20130802
  Transmission Date: 20140515
  Serious: No
  Sender: FDA-Public Use
  Company Number: US-BRISTOL-MYERS SQUIBB COMPANY-18833251

PATIENT
  Age: 87 Year
  Sex: Male
  Weight: 77.1 kg

DRUGS (4)
  1. COUMADIN TABS [Suspect]
     Dosage: 1 DF = 5/2.5MG
     Route: 048
     Dates: start: 201210
  2. METOPROLOL [Concomitant]
  3. PRAVACHOL [Concomitant]
  4. ASPIRIN [Concomitant]

REACTIONS (2)
  - Drug dose omission [Unknown]
  - Drug dispensing error [Unknown]
